FAERS Safety Report 6912514-0 (Version None)
Quarter: 2010Q3

REPORT INFORMATION
  Report Type: 
  Country: None (occurrence: None)
  Receive Date: 20100806
  Receipt Date: 20080711
  Transmission Date: 20110219
  Serious: No
  Sender: FDA-Public Use
  Company Number: US-PFIZER INC-2008006218

PATIENT
  Sex: Female
  Weight: 53.07 kg

DRUGS (5)
  1. VFEND [Suspect]
     Indication: ASPERGILLOSIS
     Route: 048
     Dates: start: 20070201
  2. VFEND [Suspect]
     Indication: FUNGAL INFECTION
  3. PREDNISONE [Concomitant]
  4. PROGRAF [Concomitant]
  5. RAPAMUNE [Concomitant]

REACTIONS (11)
  - ABDOMINAL DISTENSION [None]
  - ARTHRALGIA [None]
  - CONFUSIONAL STATE [None]
  - DEPRESSION [None]
  - GAIT DISTURBANCE [None]
  - JOINT SWELLING [None]
  - LIMB DISCOMFORT [None]
  - MYALGIA [None]
  - SKIN DISORDER [None]
  - SWELLING [None]
  - VISION BLURRED [None]
